FAERS Safety Report 17123728 (Version 1)
Quarter: 2019Q4

REPORT INFORMATION
  Report Type: Spontaneous
  Country: US (occurrence: US)
  Receive Date: 20191206
  Receipt Date: 20191206
  Transmission Date: 20200122
  Serious: No
  Sender: FDA-Public Use
  Company Number: US-AKRON, INC.-2077555

PATIENT
  Age: 68 Year
  Sex: Female

DRUGS (1)
  1. LACTULOSE SOLUTION [Suspect]
     Active Substance: LACTULOSE
     Indication: CONSTIPATION
     Route: 048

REACTIONS (1)
  - Drug ineffective [Recovered/Resolved]
